FAERS Safety Report 4607587-4 (Version None)
Quarter: 2005Q1

REPORT INFORMATION
  Report Type: 
  Country: None (occurrence: None)
  Receive Date: 20050309
  Receipt Date: 20050218
  Transmission Date: 20050727
  Serious: Yes (Life-Threatening, Hospitalization)
  Sender: FDA-Public Use
  Company Number: FR_050205873

PATIENT
  Age: 66 Year
  Sex: Male
  Weight: 60 kg

DRUGS (5)
  1. ALIMTA [Suspect]
     Indication: PLEURAL MESOTHELIOMA
     Dosage: 500 MG/M2/1 OTHER
     Dates: start: 20040515, end: 20040923
  2. CISPLATYL (CISPLATIN PHARMACIA) [Suspect]
  3. LEDERFOLINE (CALCIUM FOLINATE) [Concomitant]
  4. DETENSIEL (BISOPROOL) [Concomitant]
  5. NITROGLYCERIN [Concomitant]

REACTIONS (9)
  - CARDIAC ARREST [None]
  - CARDIAC FAILURE [None]
  - DILATATION VENTRICULAR [None]
  - DYSPNOEA [None]
  - NERVOUS SYSTEM DISORDER [None]
  - PULMONARY OEDEMA [None]
  - RENAL FAILURE [None]
  - VENTRICULAR DYSFUNCTION [None]
  - VENTRICULAR TACHYCARDIA [None]
